FAERS Safety Report 17597745 (Version 2)
Quarter: 2020Q2

REPORT INFORMATION
  Report Type: Spontaneous
  Country: US (occurrence: US)
  Receive Date: 20200330
  Receipt Date: 20200508
  Transmission Date: 20200713
  Serious: No
  Sender: FDA-Public Use
  Company Number: US-GLAXOSMITHKLINE-US2020AMR053169

PATIENT
  Sex: Female

DRUGS (1)
  1. ZEJULA [Suspect]
     Active Substance: NIRAPARIB
     Indication: OVARIAN CANCER
     Dosage: 100 MG, QD (IN THE EVENING WITHOUT FOOD)
     Route: 048
     Dates: start: 20200211

REACTIONS (3)
  - Abdominal pain upper [Unknown]
  - Off label use [Unknown]
  - Alopecia [Unknown]
